FAERS Safety Report 15300865 (Version 1)
Quarter: 2018Q3

REPORT INFORMATION
  Report Type: Spontaneous
  Country: BR (occurrence: BR)
  Receive Date: 20180821
  Receipt Date: 20180821
  Transmission Date: 20181010
  Serious: Yes (Other)
  Sender: FDA-Public Use
  Company Number: BR-ABBVIE-18P-020-2456747-00

PATIENT
  Sex: Female

DRUGS (5)
  1. CREON [Suspect]
     Active Substance: PANCRELIPASE AMYLASE\PANCRELIPASE LIPASE\PANCRELIPASE PROTEASE
     Indication: PANCREATECTOMY
     Dosage: AFTER COFFEE BREAKS AND BEFORE MAIN MEALS. START DATE: AFTER PANCREATOMY AND GASTROSTOMY
     Route: 048
  2. CREON [Suspect]
     Active Substance: PANCRELIPASE AMYLASE\PANCRELIPASE LIPASE\PANCRELIPASE PROTEASE
     Indication: MALABSORPTION
     Dosage: ADMINISTERED BY SYRINGE IN THE GASTROSTOMY TUBE. START DATE: AFTER STROKE; ONGOING
     Route: 051
  3. CREON [Suspect]
     Active Substance: PANCRELIPASE AMYLASE\PANCRELIPASE LIPASE\PANCRELIPASE PROTEASE
     Indication: GASTROSTOMY
     Dosage: AFTER MAIN MEALS. START DATE: AFTER PERFORMING PANCREATOMY AND GASTROSTOMY
     Route: 048
  4. CREON [Suspect]
     Active Substance: PANCRELIPASE AMYLASE\PANCRELIPASE LIPASE\PANCRELIPASE PROTEASE
     Indication: POST PROCEDURAL DIARRHOEA
  5. CREON [Suspect]
     Active Substance: PANCRELIPASE AMYLASE\PANCRELIPASE LIPASE\PANCRELIPASE PROTEASE
     Indication: WEIGHT DECREASED

REACTIONS (11)
  - Walking disability [Unknown]
  - Flatulence [Unknown]
  - Dysphagia [Recovering/Resolving]
  - Gastrooesophageal reflux disease [Unknown]
  - Motor dysfunction [Unknown]
  - Dyspepsia [Unknown]
  - Balance disorder [Unknown]
  - Cerebrovascular accident [Recovered/Resolved with Sequelae]
  - Parenteral nutrition [Unknown]
  - Product use issue [Unknown]
  - Gastrointestinal disorder [Unknown]

NARRATIVE: CASE EVENT DATE: 201806
